FAERS Safety Report 4791734-8 (Version None)
Quarter: 2005Q4

REPORT INFORMATION
  Report Type: 
  Country: None (occurrence: None)
  Receive Date: 20051007
  Receipt Date: 20050812
  Transmission Date: 20060501
  Serious: Yes (Death)
  Sender: FDA-Public Use
  Company Number: PHBS2005JP11780

PATIENT
  Age: 82 Year
  Sex: Female

DRUGS (6)
  1. VOLTAREN [Suspect]
     Indication: PROCEDURAL PAIN
     Dosage: 50 MG/DAY
     Route: 054
     Dates: start: 20050818, end: 20050822
  2. ASPIRIN [Concomitant]
     Route: 048
  3. MICARDIS [Concomitant]
     Route: 048
  4. AMLODIPINE BESYLATE [Concomitant]
     Route: 048
  5. UNIPHYL [Concomitant]
     Route: 048
  6. MUCOSTA [Concomitant]

REACTIONS (11)
  - ABDOMINAL PAIN [None]
  - ANAEMIA [None]
  - ANOREXIA [None]
  - AORTIC ANEURYSM [None]
  - CONDITION AGGRAVATED [None]
  - GASTRIC CANCER [None]
  - GASTROINTESTINAL HAEMORRHAGE [None]
  - HAEMATEMESIS [None]
  - NAUSEA [None]
  - SHOCK HAEMORRHAGIC [None]
  - THIRST [None]
